FAERS Safety Report 9260190 (Version 1)
Quarter: 2013Q2

REPORT INFORMATION
  Report Type: Spontaneous
  Country: US (occurrence: US)
  Receive Date: 20130429
  Receipt Date: 20130429
  Transmission Date: 20140414
  Serious: No
  Sender: FDA-Public Use
  Company Number: US-PFIZER INC-2013130572

PATIENT
  Age: 60 Year
  Sex: 0

DRUGS (6)
  1. DILANTIN KAPSEAL [Suspect]
     Dosage: UNK
  2. TEGRETOL [Suspect]
     Dosage: UNK
  3. JUNIPER [Suspect]
     Dosage: UNK
  4. DEPAKOTE [Suspect]
     Dosage: UNK
  5. IODINE [Suspect]
     Dosage: UNK
  6. MYSOLINE [Suspect]
     Dosage: UNK

REACTIONS (1)
  - Drug hypersensitivity [Unknown]
